FAERS Safety Report 14144754 (Version 1)
Quarter: 2017Q4

REPORT INFORMATION
  Report Type: Spontaneous
  Country: BE (occurrence: BE)
  Receive Date: 20171031
  Receipt Date: 20171031
  Transmission Date: 20180321
  Serious: Yes (Death, Other)
  Sender: FDA-Public Use
  Company Number: BE-BAYER-2017-209363

PATIENT
  Age: 31 Year
  Sex: Female

DRUGS (2)
  1. STIVARGA [Suspect]
     Active Substance: REGORAFENIB
     Indication: COLON CANCER
     Dosage: UNK
     Dates: start: 201303, end: 201404
  2. STIVARGA [Suspect]
     Active Substance: REGORAFENIB
     Indication: METASTASES TO LIVER

REACTIONS (6)
  - Colon cancer [None]
  - Metastases to central nervous system [None]
  - Rash [Recovering/Resolving]
  - Death [Fatal]
  - Palmar-plantar erythrodysaesthesia syndrome [Recovering/Resolving]
  - Gingivitis [None]

NARRATIVE: CASE EVENT DATE: 20130411
